FAERS Safety Report 8168209-1 (Version None)
Quarter: 2012Q1

REPORT INFORMATION
  Report Type: 
  Country: None (occurrence: None)
  Receive Date: 20120227
  Receipt Date: 20120223
  Transmission Date: 20120608
  Serious: Yes (Life-Threatening, Hospitalization)
  Sender: FDA-Public Use
  Company Number: JP-PFIZER INC-2012003942

PATIENT
  Age: 35 Year
  Sex: Male
  Weight: 69 kg

DRUGS (5)
  1. CEFAZOLIN SODIUM [Suspect]
     Indication: PROPHYLAXIS AGAINST DIARRHOEA
     Dosage: 1 G, 3X/DAY
     Route: 048
     Dates: start: 20111227, end: 20111229
  2. LEVOFLOXACIN [Concomitant]
     Indication: ACUTE TONSILLITIS
     Dosage: 500 MG, 1X/DAY
     Route: 048
     Dates: start: 20111224, end: 20111226
  3. ZITHROMAX [Suspect]
     Indication: ACUTE TONSILLITIS
     Dosage: 500 MG, DAILY
     Route: 048
     Dates: start: 20111227, end: 20111229
  4. LOXONIN [Suspect]
     Indication: PAIN
     Dosage: 60 MG, 3X/DAY
     Route: 048
     Dates: start: 20111227
  5. REBAMIPIDE [Suspect]
     Indication: GASTRITIS PROPHYLAXIS
     Dosage: 100 MG, 3X/DAY
     Route: 048
     Dates: start: 20111227, end: 20111229

REACTIONS (2)
  - ALTERED STATE OF CONSCIOUSNESS [None]
  - URTICARIA [None]
